APPROVED DRUG PRODUCT: KEFZOL
Active Ingredient: CEFAZOLIN SODIUM
Strength: EQ 20GM BASE/VIAL
Dosage Form/Route: INJECTABLE;INJECTION
Application: A061773 | Product #005
Applicant: ACS DOBFAR SPA
Approved: Sep 8, 1987 | RLD: No | RS: No | Type: DISCN